FAERS Safety Report 4640460-4 (Version None)
Quarter: 2005Q2

REPORT INFORMATION
  Report Type: 
  Country: None (occurrence: None)
  Receive Date: 20050419
  Receipt Date: 20050406
  Transmission Date: 20051028
  Serious: Yes (Other)
  Sender: FDA-Public Use
  Company Number: 2004220558US

PATIENT
  Age: 59 Year
  Sex: Female
  Weight: 78.4723 kg

DRUGS (14)
  1. PROVERA [Suspect]
     Indication: HORMONE REPLACEMENT THERAPY
     Dates: start: 19820101, end: 19970101
  2. CONJUGATED ESTROGENS [Suspect]
     Indication: HORMONE REPLACEMENT THERAPY
     Dates: start: 19820101, end: 19970101
  3. PROVELLA-14 (ESTROGENS CONJUGATED, MEDROXYPROGESTERONE ACETATE) [Suspect]
     Indication: HORMONE REPLACEMENT THERAPY
     Dates: start: 19970101, end: 20000101
  4. KLIOGEST ^NOVO INDUSTRI^ (ESTRADIOL, NORETHISTERONE ACETATE) [Suspect]
     Indication: HORMONE REPLACEMENT THERAPY
     Dates: start: 20000101
  5. SIMVASTATIN [Concomitant]
  6. ALENDRONATE SODIUM [Concomitant]
  7. FLUOXETINE HCL [Concomitant]
  8. ATORVASTATIN CALCIUM [Concomitant]
  9. DYAZIDE [Concomitant]
  10. FLUOXETINE [Concomitant]
  11. CEPHALEXIN MONOHYDRATE [Concomitant]
  12. LORAZEPAM [Concomitant]
  13. ACYCLOVIR [Concomitant]
  14. DYAZIDE [Concomitant]

REACTIONS (2)
  - BREAST CANCER [None]
  - HYPOAESTHESIA [None]
